FAERS Safety Report 5235454-4 (Version None)
Quarter: 2007Q1

REPORT INFORMATION
  Report Type: 
  Country: None (occurrence: None)
  Receive Date: 20061208
  Receipt Date: 20060706
  Transmission Date: 20070707
  Serious: Yes (Other)
  Sender: FDA-Public Use
  Company Number: 2006UW13974

PATIENT
  Age: 50 Year
  Sex: Male

DRUGS (3)
  1. CRESTOR [Suspect]
  2. CRESTOR [Suspect]
     Dates: start: 20060706
  3. ANOTHER STATIN [Concomitant]

REACTIONS (1)
  - ACNE [None]
